FAERS Safety Report 8121690-6 (Version None)
Quarter: 2012Q1

REPORT INFORMATION
  Report Type: 
  Country: None (occurrence: None)
  Receive Date: 20120206
  Receipt Date: 20120127
  Transmission Date: 20120608
  Serious: Yes (Other)
  Sender: FDA-Public Use
  Company Number: AUR-APL-2011-06313

PATIENT
  Sex: Female

DRUGS (1)
  1. ALENDRONATE ACID (ALENDRONIC ACID) (ALENDRONIC ACID, ALENDRONIC ACID) [Suspect]
     Indication: PRODUCT USED FOR UNKNOWN INDICATION
     Dosage: ORAL

REACTIONS (3)
  - DYSPHAGIA [None]
  - OESOPHAGEAL DISORDER [None]
  - DENTAL OPERATION [None]
